FAERS Safety Report 25479109 (Version 1)
Quarter: 2025Q2

REPORT INFORMATION
  Report Type: Spontaneous
  Country: US (occurrence: None)
  Receive Date: 20250625
  Receipt Date: 20250625
  Transmission Date: 20250716
  Serious: Yes (Other)
  Sender: FDA-CTU
  Company Number: None

PATIENT
  Age: 47 Year
  Sex: Female
  Weight: 51.75 kg

DRUGS (1)
  1. ETHINYL ESTRADIOL\NORETHINDRONE ACETATE [Suspect]
     Active Substance: ETHINYL ESTRADIOL\NORETHINDRONE ACETATE
     Dosage: OTHER STRENGTH : 1/10 MG/UG;?FREQUENCY : DAILY;?
     Route: 048

REACTIONS (7)
  - Sleep disorder [None]
  - Blunted affect [None]
  - Loss of libido [None]
  - Sleep deficit [None]
  - Personality change [None]
  - Product communication issue [None]
  - Dissociation [None]
